FAERS Safety Report 7678333-5 (Version None)
Quarter: 2011Q3

REPORT INFORMATION
  Report Type: 
  Country: None (occurrence: None)
  Receive Date: 20110811
  Receipt Date: 20110808
  Transmission Date: 20111222
  Serious: No
  Sender: FDA-Public Use
  Company Number: US-PFIZER INC-2011181283

PATIENT
  Age: 44 Year
  Sex: Male

DRUGS (3)
  1. GEODON [Suspect]
     Dosage: UNK
  2. ASENAPINE [Suspect]
     Indication: BIPOLAR DISORDER
     Dosage: 5 MG, 2X/DAY
     Dates: start: 20110704
  3. ZOCOR [Concomitant]
     Dosage: 40 MG, UNK
     Dates: start: 20110601

REACTIONS (6)
  - NECK PAIN [None]
  - BACK PAIN [None]
  - PAIN IN EXTREMITY [None]
  - GAIT DISTURBANCE [None]
  - MYALGIA [None]
  - SEDATION [None]
